FAERS Safety Report 5025188-3 (Version None)
Quarter: 2006Q2

REPORT INFORMATION
  Report Type: 
  Country: None (occurrence: None)
  Receive Date: 20060613
  Receipt Date: 20060504
  Transmission Date: 20061013
  Serious: Yes (Hospitalization)
  Sender: FDA-Public Use
  Company Number: FR-GLAXOSMITHKLINE-B0423171A

PATIENT
  Age: 50 Year
  Sex: Male
  Weight: 67 kg

DRUGS (4)
  1. AVANDAMET [Suspect]
     Indication: DIABETES MELLITUS NON-INSULIN-DEPENDENT
     Dosage: 1TAB TWICE PER DAY
     Route: 048
     Dates: start: 20060328
  2. LIPANTHYL [Concomitant]
     Route: 065
     Dates: start: 20050101
  3. EFFEXOR [Concomitant]
     Indication: DEPRESSION
     Dosage: 75MG PER DAY
     Route: 048
     Dates: start: 20060320
  4. EQUANIL [Concomitant]
     Indication: ANXIETY
     Dosage: 1600MG PER DAY
     Route: 048
     Dates: start: 20060320

REACTIONS (9)
  - ANAEMIA [None]
  - ASCITES [None]
  - ERYTHEMA [None]
  - HEPATIC CIRRHOSIS [None]
  - MELAENA [None]
  - OEDEMA PERIPHERAL [None]
  - PALLOR [None]
  - VARICES OESOPHAGEAL [None]
  - WEIGHT INCREASED [None]
